FAERS Safety Report 8926725 (Version 1)
Quarter: 2012Q4

REPORT INFORMATION
  Report Type: 
  Country: DE (occurrence: DE)
  Receive Date: 20121127
  Receipt Date: 20121127
  Transmission Date: 20130627
  Serious: Yes (Hospitalization)
  Sender: FDA-Public Use
  Company Number: DE-PFIZER INC-2012292735

PATIENT
  Age: 44 Year
  Sex: Female
  Weight: 155 kg

DRUGS (4)
  1. GENOTROPIN [Suspect]
     Dosage: 0.8 mg, 1x/day,7 injections/week
     Route: 058
     Dates: start: 19991208
  2. LEVOTHYROXINE [Concomitant]
     Indication: TSH DECREASED
     Dosage: UNK
     Dates: start: 19980501
  3. LEVOTHYROXINE [Concomitant]
     Indication: PRIMARY HYPOTHYROIDISM
  4. CORTISONE ACETATE [Concomitant]
     Indication: ACTH DECREASED
     Dosage: UNK
     Dates: start: 19980501

REACTIONS (1)
  - Hypoglycaemia [Unknown]
